FAERS Safety Report 21862814 (Version 1)
Quarter: 2023Q1

REPORT INFORMATION
  Report Type: Spontaneous
  Country: US (occurrence: US)
  Receive Date: 20230114
  Receipt Date: 20230114
  Transmission Date: 20230417
  Serious: No
  Sender: FDA-Public Use
  Company Number: US-drreddys-SPO/USA/22/0159222

PATIENT
  Age: 70 Year
  Sex: Male

DRUGS (16)
  1. LENALIDOMIDE [Suspect]
     Active Substance: LENALIDOMIDE
     Indication: Plasma cell myeloma
     Dosage: TAKE 1 CAPSULE BY MOUTH EVERY DAY ON DAYS 1-21 OF EACH 28 DAY CYCLE
     Route: 048
     Dates: start: 20221114
  2. PANTOPRAZOLE SODIUM [Concomitant]
     Active Substance: PANTOPRAZOLE SODIUM
     Indication: Product used for unknown indication
  3. PRAVASTATIN [Concomitant]
     Active Substance: PRAVASTATIN
     Indication: Product used for unknown indication
  4. ELIQUIS [Concomitant]
     Active Substance: APIXABAN
     Indication: Product used for unknown indication
  5. VALACYCLOVIR HYDROCHLORIDE [Concomitant]
     Active Substance: VALACYCLOVIR HYDROCHLORIDE
     Indication: Product used for unknown indication
  6. ACYCLOVIR TAB 800MG [Concomitant]
     Indication: Product used for unknown indication
  7. AMLODIPINE B TAB 10MG [Concomitant]
     Indication: Product used for unknown indication
  8. CLONIDINE HC TAB 0.1MG [Concomitant]
     Indication: Product used for unknown indication
  9. CLOTRIMAZOLE LOT 1-0.05 percent [Concomitant]
     Indication: Product used for unknown indication
  10. FLUTICASONE SUS 50MCG/AC [Concomitant]
     Indication: Product used for unknown indication
  11. HYDROCHLOROT TAB 25MG [Concomitant]
     Indication: Product used for unknown indication
  12. LOSARTAN POT TAB 100MG [Concomitant]
     Indication: Product used for unknown indication
  13. MUPIROCIN OIN 2 [Concomitant]
     Indication: Product used for unknown indication
  14. ROSUVASTATIN TAB 40MG, [Concomitant]
     Indication: Product used for unknown indication
  15. SERTRALINE H TAB 25MG [Concomitant]
     Indication: Product used for unknown indication
  16. SILDENAFIL C TAB 100MG [Concomitant]
     Indication: Product used for unknown indication

REACTIONS (1)
  - Hypoaesthesia [Unknown]
